FAERS Safety Report 21964426 (Version 1)
Quarter: 2023Q1

REPORT INFORMATION
  Report Type: Spontaneous
  Country: US (occurrence: None)
  Receive Date: 20230206
  Receipt Date: 20230206
  Transmission Date: 20230417
  Serious: Yes (unspecified)
  Sender: FDA-Public Use
  Company Number: None

PATIENT
  Age: 55 Year
  Sex: Male
  Weight: 66.15 kg

DRUGS (7)
  1. CIPROFLOXACIN [Suspect]
     Active Substance: CIPROFLOXACIN
     Indication: Conjunctivitis
     Dosage: OTHER QUANTITY : 2 DROP(S);?FREQUENCY : EVERY 8 HOURS;?
     Route: 047
     Dates: start: 20230122, end: 20230126
  2. FEBUXOSTAT [Concomitant]
     Active Substance: FEBUXOSTAT
  3. LATONOPROST EYE DROP [Concomitant]
  4. DOXYCYCLINE [Concomitant]
     Active Substance: DOXYCYCLINE
  5. OMEGA 3 ACID [Concomitant]
  6. LOTAMAX EYE DROP [Concomitant]
  7. OTC ARTIFICIAL TEARS [Concomitant]

REACTIONS (2)
  - Visual impairment [None]
  - Visual impairment [None]

NARRATIVE: CASE EVENT DATE: 20230126
